FAERS Safety Report 16073981 (Version 1)
Quarter: 2019Q1

REPORT INFORMATION
  Report Type: Spontaneous
  Country: US (occurrence: US)
  Receive Date: 20190314
  Receipt Date: 20190314
  Transmission Date: 20190418
  Serious: Yes (Hospitalization, Other)
  Sender: FDA-Public Use
  Company Number: US-ELI_LILLY_AND_COMPANY-US201903003394

PATIENT
  Sex: Female

DRUGS (2)
  1. FORTEO [Suspect]
     Active Substance: TERIPARATIDE
     Indication: PRODUCT USED FOR UNKNOWN INDICATION
     Dosage: UNK UNK, UNKNOWN
     Route: 065
  2. PROLIA [Suspect]
     Active Substance: DENOSUMAB
     Indication: BONE DISORDER
     Dosage: UNK UNK, UNKNOWN
     Route: 065
     Dates: start: 20170313, end: 20170913

REACTIONS (15)
  - Sinusitis [Not Recovered/Not Resolved]
  - Decubitus ulcer [Not Recovered/Not Resolved]
  - Tooth abscess [Unknown]
  - Tooth infection [Not Recovered/Not Resolved]
  - Femur fracture [Unknown]
  - Fall [Unknown]
  - Dental necrosis [Unknown]
  - Impaired healing [Unknown]
  - Immune system disorder [Unknown]
  - Basedow^s disease [Unknown]
  - Dyspnoea [Unknown]
  - Loose tooth [Unknown]
  - Osteoarthritis [Unknown]
  - Spinal fracture [Unknown]
  - Weight increased [Unknown]

NARRATIVE: CASE EVENT DATE: 20170327
